FAERS Safety Report 19581109 (Version 3)
Quarter: 2021Q3

REPORT INFORMATION
  Report Type: Spontaneous
  Country: DE (occurrence: DE)
  Receive Date: 20210720
  Receipt Date: 20210909
  Transmission Date: 20211014
  Serious: Yes (Other)
  Sender: FDA-Public Use
  Company Number: DE-BRISTOL-MYERS SQUIBB COMPANY-BMS-2021-069869

PATIENT
  Age: 42 Year
  Sex: Female

DRUGS (2)
  1. NIVOLUMAB [Suspect]
     Active Substance: NIVOLUMAB
     Dosage: 240 MILLIGRAM, Q2WK
     Route: 065
     Dates: end: 201910
  2. NIVOLUMAB [Suspect]
     Active Substance: NIVOLUMAB
     Indication: TONGUE NEOPLASM MALIGNANT STAGE UNSPECIFIED
     Dosage: 3 MILLIGRAM/KILOGRAM
     Route: 065
     Dates: end: 201910

REACTIONS (8)
  - Off label use [Unknown]
  - Hepatotoxicity [Unknown]
  - Fatigue [Unknown]
  - Dyspnoea [Unknown]
  - Dysphagia [Unknown]
  - Dry mouth [Unknown]
  - Mucosal inflammation [Unknown]
  - Haemoptysis [Unknown]
